FAERS Safety Report 5129985-5 (Version None)
Quarter: 2006Q4

REPORT INFORMATION
  Report Type: 
  Country: None (occurrence: None)
  Receive Date: 20061013
  Receipt Date: 20060929
  Transmission Date: 20070319
  Serious: Yes (Life-Threatening, Hospitalization, Disabling)
  Sender: FDA-Public Use
  Company Number: 2006RR-03968

PATIENT
  Age: 83 Year
  Sex: Female

DRUGS (2)
  1. CO-AMOXICLAV(CLAVULANIC ACID, AMOXICILLIN TRIHYDRATE) UNKNOWN [Suspect]
     Indication: PROPHYLAXIS
     Dosage: 1.2 G, SINGLE, IV BOLUS
     Route: 040
  2. BUPIVACAINE [Concomitant]

REACTIONS (4)
  - ANAPHYLACTIC SHOCK [None]
  - CIRCULATORY COLLAPSE [None]
  - ELECTROMECHANICAL DISSOCIATION [None]
  - PROCEDURAL COMPLICATION [None]
